FAERS Safety Report 8372824-X (Version None)
Quarter: 2012Q2

REPORT INFORMATION
  Report Type: 
  Country: None (occurrence: None)
  Receive Date: 20120521
  Receipt Date: 20120515
  Transmission Date: 20120825
  Serious: Yes (Other)
  Sender: FDA-Public Use
  Company Number: BR-SANOFI-AVENTIS-2012SA034880

PATIENT
  Sex: Female

DRUGS (3)
  1. ARAVA [Suspect]
     Indication: RHEUMATOID ARTHRITIS
     Route: 065
  2. METICORTEN [Concomitant]
     Indication: RHEUMATOID ARTHRITIS
  3. ETANERCEPT [Concomitant]
     Indication: RHEUMATOID ARTHRITIS

REACTIONS (1)
  - ENDOMETRIAL HYPERPLASIA [None]
